FAERS Safety Report 15884522 (Version 1)
Quarter: 2019Q1

REPORT INFORMATION
  Report Type: Spontaneous
  Country: US (occurrence: US)
  Receive Date: 20190107
  Receipt Date: 20190107
  Transmission Date: 20190417
  Serious: Yes (Hospitalization)
  Sender: FDA-Public Use
  Company Number: None

PATIENT
  Age: 61 Year
  Sex: Male
  Weight: 77.11 kg

DRUGS (18)
  1. THIAMINE. [Concomitant]
     Active Substance: THIAMINE
  2. FUROSEMIDE. [Concomitant]
     Active Substance: FUROSEMIDE
  3. MULTIVITAMIN [Concomitant]
     Active Substance: VITAMINS
  4. VOSEVI [Suspect]
     Active Substance: SOFOSBUVIR\VELPATASVIR\VOXILAPREVIR
     Indication: HEPATITIS C
     Dosage: ?          OTHER DOSE:1 TABLET;?
     Route: 048
     Dates: start: 20180425, end: 20180726
  5. ATORVASTATIN [Concomitant]
     Active Substance: ATORVASTATIN
  6. BUMEX [Concomitant]
     Active Substance: BUMETANIDE
  7. ASPIRIN. [Concomitant]
     Active Substance: ASPIRIN
  8. METOPROLOL. [Concomitant]
     Active Substance: METOPROLOL
  9. CARVEDIOL [Concomitant]
     Active Substance: CARVEDILOL
  10. FOLIC ACID. [Concomitant]
     Active Substance: FOLIC ACID
  11. OMEPRAZOLE. [Concomitant]
     Active Substance: OMEPRAZOLE
  12. LISINOPRIL. [Concomitant]
     Active Substance: LISINOPRIL
  13. MORPHINE [Concomitant]
     Active Substance: MORPHINE
  14. IRON SULFATE [Concomitant]
     Active Substance: FERROUS SULFATE ANHYDROUS
  15. ADVAIR HFA [Concomitant]
     Active Substance: FLUTICASONE PROPIONATE\SALMETEROL XINAFOATE
  16. OXYCODONE [Concomitant]
     Active Substance: OXYCODONE
  17. SPIRONOLACTONE. [Concomitant]
     Active Substance: SPIRONOLACTONE
  18. LEVOFLOXACIN. [Concomitant]
     Active Substance: LEVOFLOXACIN

REACTIONS (2)
  - Abdominal pain upper [None]
  - Dyspnoea [None]

NARRATIVE: CASE EVENT DATE: 20180623
